FAERS Safety Report 6709337-4 (Version None)
Quarter: 2010Q2

REPORT INFORMATION
  Report Type: 
  Country: None (occurrence: None)
  Receive Date: 20100429
  Receipt Date: 20100426
  Transmission Date: 20101027
  Serious: Yes (Life-Threatening, Hospitalization)
  Sender: FDA-Public Use
  Company Number: SPV1-2010-00517

PATIENT
  Age: 57 Year
  Sex: Female

DRUGS (6)
  1. FOSRENOL [Suspect]
     Indication: HYPERPHOSPHATAEMIA
     Dosage: 250 MG, ONE DOSE, ORAL
     Route: 048
     Dates: start: 20100317, end: 20100317
  2. ADALAT CR (NIFEDIPINE) UNKNOWN [Concomitant]
  3. ARTIST (CARVEDILOL) UNKNOWN [Concomitant]
  4. DIOVAN [Concomitant]
  5. TAVEGYL /00137201/ (CLEMASTINE) UNKNOWN [Concomitant]
  6. ALLEGRA /01314201/ (FEXOFENADINE) UNKNOWN [Concomitant]

REACTIONS (7)
  - ANAPHYLACTIC REACTION [None]
  - BLOOD PRESSURE INCREASED [None]
  - CARDIAC FAILURE ACUTE [None]
  - CARDIOMEGALY [None]
  - CHEST DISCOMFORT [None]
  - PALPITATIONS [None]
  - PULMONARY OEDEMA [None]
